FAERS Safety Report 9511588 (Version 1)
Quarter: 2013Q3

REPORT INFORMATION
  Report Type: Spontaneous
  Country: BR (occurrence: BR)
  Receive Date: 20130910
  Receipt Date: 20130910
  Transmission Date: 20140515
  Serious: Yes (Other)
  Sender: FDA-Public Use
  Company Number: PHHY2013BR098562

PATIENT
  Age: 28 Year
  Sex: Female

DRUGS (4)
  1. TRILEPTAL [Suspect]
     Dosage: 600 MG, UNK
  2. OLEPTAL [Suspect]
     Dosage: 2 DF, DAILY
  3. GARDENAL//PHENOBARBITAL [Suspect]
     Dosage: UNK UKN, UNK
  4. ASSERT [Suspect]
     Dosage: 100 MG, UNK

REACTIONS (5)
  - Brain neoplasm [Unknown]
  - Depression [Unknown]
  - Epilepsy [Unknown]
  - Malaise [Unknown]
  - Amnesia [Unknown]
